FAERS Safety Report 20827364 (Version 1)
Quarter: 2022Q2

REPORT INFORMATION
  Report Type: Spontaneous
  Country: US (occurrence: None)
  Receive Date: 20220513
  Receipt Date: 20220513
  Transmission Date: 20220721
  Serious: Yes (Hospitalization)
  Sender: FDA-Public Use
  Company Number: None

PATIENT
  Age: 67 Year
  Sex: Female

DRUGS (3)
  1. FORTEO [Suspect]
     Active Substance: TERIPARATIDE
     Dosage: OTHER QUANTITY : 600UG/2.4ML;?FREQUENCY : AS DIRECTED; INJECT 20 MCG UNDER THE SKIN (SUBCUTANEOUS IN
     Route: 058
     Dates: start: 20220120
  2. FORTEO [Suspect]
     Active Substance: TERIPARATIDE
     Dosage: FREQUENCY : AS DIRECTED;?
     Route: 058
  3. CIMZIA [Concomitant]
     Active Substance: CERTOLIZUMAB PEGOL

REACTIONS (1)
  - Neck surgery [None]

NARRATIVE: CASE EVENT DATE: 20220310
